FAERS Safety Report 13639844 (Version 1)
Quarter: 2017Q2

REPORT INFORMATION
  Report Type: Spontaneous
  Country: US (occurrence: US)
  Receive Date: 20170609
  Receipt Date: 20170609
  Transmission Date: 20170830
  Serious: No
  Sender: FDA-Public Use
  Company Number: US-ROCHE-662110

PATIENT
  Age: 59 Year
  Sex: Female

DRUGS (1)
  1. KLONOPIN [Suspect]
     Active Substance: CLONAZEPAM
     Indication: ANXIETY
     Dosage: 0.75MG IN AM AND 1.0 MG IN PM
     Route: 065

REACTIONS (2)
  - No adverse event [Unknown]
  - Pregnancy [Unknown]
